FAERS Safety Report 16447445 (Version 1)
Quarter: 2019Q2

REPORT INFORMATION
  Report Type: Report from Study
  Country: US (occurrence: US)
  Receive Date: 20190619
  Receipt Date: 20190619
  Transmission Date: 20190711
  Serious: Yes (Hospitalization)
  Sender: FDA-Public Use
  Company Number: US-SUN PHARMACEUTICAL INDUSTRIES LTD-2019R1-210772

PATIENT
  Age: 15 Month
  Sex: Male

DRUGS (1)
  1. DEXTROAMPHET SACCHARAT, AMPHET ASPARTATE, DEXTROAMPHET SULFATE AND AMPHET SULFAT [Suspect]
     Active Substance: AMPHETAMINE ASPARTATE\AMPHETAMINE SULFATE\DEXTROAMPHETAMINE SACCHARATE\DEXTROAMPHETAMINE SULFATE
     Indication: PRODUCT USED FOR UNKNOWN INDICATION
     Dosage: UNK
     Route: 048

REACTIONS (8)
  - Neutrophilia [Recovering/Resolving]
  - Amphetamines positive [Recovering/Resolving]
  - Accidental exposure to product by child [Unknown]
  - Hallucination [Recovering/Resolving]
  - Metabolic acidosis [Recovering/Resolving]
  - Crying [Recovering/Resolving]
  - Body temperature decreased [Recovering/Resolving]
  - Sinus tachycardia [Recovering/Resolving]
